FAERS Safety Report 10754024 (Version 1)
Quarter: 2015Q1

REPORT INFORMATION
  Report Type: Spontaneous
  Country: US (occurrence: None)
  Receive Date: 20150129
  Receipt Date: 20150129
  Transmission Date: 20150721
  Serious: Yes (Life-Threatening)
  Sender: FDA-Public Use
  Company Number: 2723063

PATIENT
  Age: 15 Year
  Sex: Male
  Weight: 76 kg

DRUGS (4)
  1. ADENOSINE. [Concomitant]
     Active Substance: ADENOSINE
  2. SOTALOL. [Concomitant]
     Active Substance: SOTALOL
  3. AMIODARONE [Suspect]
     Active Substance: AMIODARONE
     Indication: VENTRICULAR TACHYCARDIA
     Route: 041
  4. ATENOLOL. [Concomitant]
     Active Substance: ATENOLOL

REACTIONS (4)
  - Pulseless electrical activity [None]
  - Cardiac arrest [None]
  - Kounis syndrome [None]
  - Anaphylactic shock [None]
